FAERS Safety Report 11031639 (Version 1)
Quarter: 2015Q2

REPORT INFORMATION
  Report Type: Spontaneous
  Country: US (occurrence: US)
  Receive Date: 20150415
  Receipt Date: 20150415
  Transmission Date: 20150821
  Serious: No
  Sender: FDA-Public Use
  Company Number: US-SA-2014SA178909

PATIENT
  Sex: Female

DRUGS (3)
  1. PENICILLIN NOS [Concomitant]
     Active Substance: PENICILLIN
  2. IMURAN [Concomitant]
     Active Substance: AZATHIOPRINE
  3. DEMEROL [Suspect]
     Active Substance: MEPERIDINE HYDROCHLORIDE
     Route: 065

REACTIONS (1)
  - Hypersensitivity [Unknown]
